FAERS Safety Report 18011019 (Version 4)
Quarter: 2020Q4

REPORT INFORMATION
  Report Type: Spontaneous
  Country: JP (occurrence: JP)
  Receive Date: 20200710
  Receipt Date: 20201229
  Transmission Date: 20210113
  Serious: Yes (Death, Life-Threatening, Hospitalization, Other)
  Sender: FDA-Public Use
  Company Number: JP-009507513-2007JPN000149J

PATIENT
  Age: 82 Year
  Sex: Male
  Weight: 51 kg

DRUGS (3)
  1. KEYTRUDA [Suspect]
     Active Substance: PEMBROLIZUMAB
     Indication: COLON CANCER STAGE IV
     Dosage: 200 MILLIGRAM, Q3W
     Route: 041
     Dates: start: 20190225, end: 20191111
  2. HIRUDOID [Concomitant]
     Active Substance: GLYCOSAMINOGLYCANS
     Indication: PROPHYLAXIS
     Dosage: UNK, QID
     Route: 051
  3. CLENAFIN [Concomitant]
     Active Substance: EFINACONAZOLE
     Indication: DISEASE COMPLICATION
     Dosage: UNK, QD
     Route: 051

REACTIONS (7)
  - Interstitial lung disease [Recovered/Resolved]
  - Cardiac failure [Not Recovered/Not Resolved]
  - Interstitial lung disease [Recovered/Resolved]
  - Clostridium difficile infection [Recovered/Resolved]
  - Hepatic function abnormal [Unknown]
  - Oedema [Not Recovered/Not Resolved]
  - Interstitial lung disease [Fatal]

NARRATIVE: CASE EVENT DATE: 20191202
